FAERS Safety Report 5169901-3 (Version None)
Quarter: 2006Q4

REPORT INFORMATION
  Report Type: 
  Country: None (occurrence: None)
  Receive Date: 20061212
  Receipt Date: 20061201
  Transmission Date: 20070319
  Serious: Yes (Life-Threatening)
  Sender: FDA-Public Use
  Company Number: AU-ROCHE-473460

PATIENT
  Age: 87 Year
  Sex: Male

DRUGS (4)
  1. CEFTRIAXONE SODIUM [Suspect]
     Indication: PNEUMONIA
     Dosage: TAKEN DAILY.
     Route: 042
     Dates: start: 20060821, end: 20060826
  2. CIPROFLOXACIN [Interacting]
     Indication: OESOPHAGEAL DISORDER
     Route: 065
     Dates: start: 20060821
  3. MAREVAN [Interacting]
     Indication: ARRHYTHMIA
     Route: 048
     Dates: start: 20060205
  4. RANITIDINE [Concomitant]
     Indication: OESOPHAGEAL DISORDER

REACTIONS (3)
  - DRUG INTERACTION [None]
  - HAEMATURIA [None]
  - INTERNATIONAL NORMALISED RATIO INCREASED [None]
